FAERS Safety Report 4757826-4 (Version None)
Quarter: 2005Q3

REPORT INFORMATION
  Report Type: 
  Country: None (occurrence: None)
  Receive Date: 20050830
  Receipt Date: 20050818
  Transmission Date: 20060218
  Serious: Yes (Other)
  Sender: FDA-Public Use
  Company Number: 27239

PATIENT
  Age: 65 Year
  Sex: Male

DRUGS (1)
  1. TAMBOCOR [Suspect]
     Indication: TACHYCARDIA
     Dosage: ORAL
     Route: 048

REACTIONS (4)
  - HAEMOLYSIS [None]
  - MUSCULAR WEAKNESS [None]
  - POLYNEUROPATHY [None]
  - TREMOR [None]
